FAERS Safety Report 16628834 (Version 9)
Quarter: 2020Q4

REPORT INFORMATION
  Report Type: Spontaneous
  Country: US (occurrence: US)
  Receive Date: 20190725
  Receipt Date: 20201022
  Transmission Date: 20210113
  Serious: Yes (Other)
  Sender: FDA-Public Use
  Company Number: US-PFIZER INC-2019285082

PATIENT
  Age: 62 Year
  Sex: Female
  Weight: 49 kg

DRUGS (11)
  1. PANTOPRAZOLE [Concomitant]
     Active Substance: PANTOPRAZOLE
     Indication: GASTROOESOPHAGEAL REFLUX DISEASE
     Dosage: 40 MG, UNK
  2. MIRTAZAPINE. [Concomitant]
     Active Substance: MIRTAZAPINE
     Indication: ANXIETY
     Dosage: 15 MG, UNK
  3. LYRICA [Suspect]
     Active Substance: PREGABALIN
     Indication: FIBROMYALGIA
     Dosage: 75 MG, 3X/DAY
     Route: 048
     Dates: start: 20190617
  4. MIRTAZAPINE. [Concomitant]
     Active Substance: MIRTAZAPINE
     Indication: DEPRESSION
  5. VITAMIN D3 [Concomitant]
     Active Substance: CHOLECALCIFEROL
     Dosage: UNK
  6. VIIBRYD [Concomitant]
     Active Substance: VILAZODONE HYDROCHLORIDE
     Indication: ANXIETY
     Dosage: 20 MG, UNK
  7. ASPIRIN. [Concomitant]
     Active Substance: ASPIRIN
     Dosage: 81 MG, DAILY
  8. CLONAZEPAM. [Concomitant]
     Active Substance: CLONAZEPAM
     Indication: ANXIETY
     Dosage: 1 MG, UNK
  9. WARFARIN [Concomitant]
     Active Substance: WARFARIN
     Indication: CEREBROVASCULAR ACCIDENT
     Dosage: UNK
  10. CALCIUM [Concomitant]
     Active Substance: CALCIUM
     Dosage: UNK
  11. VIIBRYD [Concomitant]
     Active Substance: VILAZODONE HYDROCHLORIDE
     Indication: DEPRESSION

REACTIONS (7)
  - Cerebrovascular accident [Unknown]
  - Somnolence [Unknown]
  - Memory impairment [Unknown]
  - Panic reaction [Unknown]
  - Foot fracture [Unknown]
  - Visual impairment [Unknown]
  - Pain [Not Recovered/Not Resolved]

NARRATIVE: CASE EVENT DATE: 2019
